FAERS Safety Report 12613733 (Version 1)
Quarter: 2016Q3

REPORT INFORMATION
  Report Type: Spontaneous
  Country: IT (occurrence: IT)
  Receive Date: 20160802
  Receipt Date: 20160802
  Transmission Date: 20161109
  Serious: Yes (Other)
  Sender: FDA-Public Use
  Company Number: IT-SA-2016SA135366

PATIENT
  Age: 35 Year
  Sex: Female
  Weight: 50 kg

DRUGS (4)
  1. RIFADIN [Suspect]
     Active Substance: RIFAMPIN
     Indication: RENAL TUBERCULOSIS
     Route: 048
     Dates: start: 20070427, end: 20071012
  2. NICOZID [Concomitant]
     Active Substance: ISONIAZID
     Indication: RENAL TUBERCULOSIS
     Route: 048
     Dates: start: 20070427, end: 20070528
  3. ETAPIAM [Suspect]
     Active Substance: ETHAMBUTOL HYDROCHLORIDE
     Indication: RENAL TUBERCULOSIS
     Route: 048
     Dates: start: 20070427, end: 20071012
  4. PIRALDINA [Suspect]
     Active Substance: PYRAZINAMIDE
     Indication: RENAL TUBERCULOSIS
     Route: 048
     Dates: start: 20070427, end: 20071012

REACTIONS (8)
  - Hepatotoxicity [Recovering/Resolving]
  - Pruritus [Recovering/Resolving]
  - Aspartate aminotransferase increased [Recovering/Resolving]
  - Asthenia [Recovering/Resolving]
  - Nausea [Recovering/Resolving]
  - Musculoskeletal pain [Recovering/Resolving]
  - Alanine aminotransferase increased [Recovering/Resolving]
  - Abdominal pain [Recovering/Resolving]

NARRATIVE: CASE EVENT DATE: 20071012
